FAERS Safety Report 8000747-4 (Version None)
Quarter: 2011Q4

REPORT INFORMATION
  Report Type: 
  Country: None (occurrence: None)
  Receive Date: 20111216
  Receipt Date: 20111202
  Transmission Date: 20120403
  Serious: Yes (Other)
  Sender: FDA-Public Use
  Company Number: US-1189385

PATIENT
  Age: 28 Year
  Sex: Female

DRUGS (1)
  1. PROPARACAINE HYDROCHLORIDE [Suspect]
     Dosage: (OPHTHALMIC)
     Route: 047

REACTIONS (13)
  - KERATITIS FUNGAL [None]
  - CORNEAL THINNING [None]
  - DRUG ABUSE [None]
  - HYPERAEMIA [None]
  - CORNEAL ABSCESS [None]
  - DRUG HYPERSENSITIVITY [None]
  - PHOTOPHOBIA [None]
  - EYELID OEDEMA [None]
  - ERYTHEMA OF EYELID [None]
  - CORNEAL EPITHELIUM DEFECT [None]
  - RASH ERYTHEMATOUS [None]
  - EYE IRRITATION [None]
  - DERMATITIS [None]
